FAERS Safety Report 9401894 (Version 1)
Quarter: 2013Q3

REPORT INFORMATION
  Report Type: Report from Study
  Country: ZA (occurrence: ZA)
  Receive Date: 20130716
  Receipt Date: 20130716
  Transmission Date: 20140515
  Serious: Yes (Death)
  Sender: FDA-Public Use
  Company Number: ZA-ROCHE-1249255

PATIENT
  Age: 73 Year
  Sex: Female

DRUGS (4)
  1. MIRCERA [Suspect]
     Indication: PRODUCT USED FOR UNKNOWN INDICATION
     Route: 058
     Dates: start: 201304
  2. MIRCERA [Suspect]
     Route: 058
     Dates: start: 201112
  3. MIRCERA [Suspect]
     Route: 058
     Dates: start: 201209
  4. MIRCERA [Suspect]
     Route: 058
     Dates: start: 201210

REACTIONS (1)
  - Death [Fatal]
